FAERS Safety Report 7362261 (Version 6)
Quarter: 2012Q4

REPORT INFORMATION
  Report Type: 
  Country: US (occurrence: US)
  Receive Date: 20100422
  Receipt Date: 20121023
  Transmission Date: 20130627
  Serious: No
  Sender: FDA-Public Use
  Company Number: US-BIOGENIDEC-2010BI013125

PATIENT
  Age: 42 Year
  Sex: Female

DRUGS (26)
  1. TYSABRI [Suspect]
     Indication: MULTIPLE SCLEROSIS
     Route: 042
     Dates: start: 20070122
  2. CANNABIS SATIVA SUBSP. INDICA TOP [Concomitant]
     Indication: PAIN IN EXTREMITY
  3. CANNABIS SATIVA SUBSP. INDICA TOP [Concomitant]
     Indication: PAIN IN EXTREMITY
  4. CANNABIS SATIVA SUBSP. INDICA TOP [Concomitant]
     Indication: HYPOAESTHESIA
  5. CANNABIS SATIVA SUBSP. INDICA TOP [Concomitant]
     Indication: FOOT FRACTURE
  6. CANNABIS SATIVA SUBSP. INDICA TOP [Concomitant]
     Indication: BACK PAIN
  7. CANNABIS SATIVA SUBSP. INDICA TOP [Concomitant]
     Indication: NECK PAIN
  8. CANNABIS SATIVA SUBSP. INDICA TOP [Concomitant]
     Indication: SPINAL COLUMN STENOSIS
  9. CANNABIS SATIVA SUBSP. INDICA TOP [Concomitant]
     Indication: INTERVERTEBRAL DISC PROTRUSION
  10. CANNABIS SATIVA SUBSP. INDICA TOP [Concomitant]
     Indication: OEDEMA PERIPHERAL
  11. CANNABIS SATIVA SUBSP. INDICA TOP [Concomitant]
     Indication: TOBACCO USER
  12. CANNABIS SATIVA SUBSP. INDICA TOP [Concomitant]
     Indication: MULTIPLE SCLEROSIS RELAPSE
  13. CANNABIS SATIVA SUBSP. INDICA TOP [Concomitant]
     Indication: CENTRAL NERVOUS SYSTEM LESION
  14. NARCOTICS (NOS) [Concomitant]
     Indication: PAIN IN EXTREMITY
     Route: 048
  15. NARCOTICS (NOS) [Concomitant]
     Indication: PAIN IN EXTREMITY
     Route: 048
  16. NARCOTICS (NOS) [Concomitant]
     Indication: HYPOAESTHESIA
     Route: 048
  17. NARCOTICS (NOS) [Concomitant]
     Indication: FOOT FRACTURE
     Route: 048
  18. NARCOTICS (NOS) [Concomitant]
     Indication: BACK PAIN
     Route: 048
  19. NARCOTICS (NOS) [Concomitant]
     Indication: NECK PAIN
     Route: 048
  20. NARCOTICS (NOS) [Concomitant]
     Indication: SPINAL COLUMN STENOSIS
     Route: 048
  21. NARCOTICS (NOS) [Concomitant]
     Indication: INTERVERTEBRAL DISC PROTRUSION
     Route: 048
  22. NARCOTICS (NOS) [Concomitant]
     Indication: OEDEMA PERIPHERAL
     Route: 048
  23. NARCOTICS (NOS) [Concomitant]
     Indication: TOBACCO USER
     Route: 048
  24. NARCOTICS (NOS) [Concomitant]
     Indication: MULTIPLE SCLEROSIS RELAPSE
     Route: 048
  25. NARCOTICS (NOS) [Concomitant]
     Indication: CENTRAL NERVOUS SYSTEM LESION
     Route: 048
  26. NARCOTICS (NOS) [Concomitant]
     Indication: ARTHRITIS
     Route: 048

REACTIONS (28)
  - Dysstasia [Recovered/Resolved]
  - Suicidal ideation [Recovered/Resolved]
  - Depression [Not Recovered/Not Resolved]
  - Migraine [Not Recovered/Not Resolved]
  - Oedema peripheral [Not Recovered/Not Resolved]
  - Pain in extremity [Not Recovered/Not Resolved]
  - Vitamin B complex deficiency [Not Recovered/Not Resolved]
  - Memory impairment [Not Recovered/Not Resolved]
  - Back pain [Recovered/Resolved]
  - Neck pain [Recovered/Resolved]
  - Amnesia [Not Recovered/Not Resolved]
  - Arthritis [Not Recovered/Not Resolved]
  - Pain [Unknown]
  - Insomnia [Unknown]
  - Paraesthesia [Not Recovered/Not Resolved]
  - Abdominal pain upper [Not Recovered/Not Resolved]
  - Ear pain [Not Recovered/Not Resolved]
  - Glossodynia [Not Recovered/Not Resolved]
  - Swollen tongue [Not Recovered/Not Resolved]
  - Bruxism [Not Recovered/Not Resolved]
  - Heart rate increased [Recovered/Resolved]
  - Tremor [Recovered/Resolved]
  - Nausea [Not Recovered/Not Resolved]
  - Oropharyngeal pain [Not Recovered/Not Resolved]
  - Multiple sclerosis relapse [Recovered/Resolved]
  - Fatigue [Not Recovered/Not Resolved]
  - Headache [Not Recovered/Not Resolved]
  - Arthralgia [Not Recovered/Not Resolved]
